FAERS Safety Report 16277598 (Version 6)
Quarter: 2019Q3

REPORT INFORMATION
  Report Type: Spontaneous
  Country: US (occurrence: US)
  Receive Date: 20190506
  Receipt Date: 20190917
  Transmission Date: 20191004
  Serious: No
  Sender: FDA-Public Use
  Company Number: US-PFIZER INC-2019189196

PATIENT
  Age: 51 Year
  Sex: Female
  Weight: 66.22 kg

DRUGS (2)
  1. SUTENT [Suspect]
     Active Substance: SUNITINIB MALATE
     Dosage: 12.5 MG, UNK
  2. SUTENT [Suspect]
     Active Substance: SUNITINIB MALATE
     Indication: RENAL CANCER
     Dosage: 37.5 MG, CYCLIC (ONCE A DAY FOR A CYCLE OF 14 DAYS ON, OFF FOR 7 DAYS FOR 3 MONTHS)
     Route: 048
     Dates: start: 20190404, end: 20190417

REACTIONS (8)
  - Nausea [Unknown]
  - Oropharyngeal pain [Recovering/Resolving]
  - Glossitis [Recovering/Resolving]
  - Feeding disorder [Unknown]
  - Diarrhoea [Unknown]
  - Product dose omission [Unknown]
  - Weight decreased [Unknown]
  - Malaise [Unknown]

NARRATIVE: CASE EVENT DATE: 201904
